FAERS Safety Report 5989729-1 (Version None)
Quarter: 2008Q4

REPORT INFORMATION
  Report Type: 
  Country: None (occurrence: None)
  Receive Date: 20081208
  Receipt Date: 20081127
  Transmission Date: 20090506
  Serious: Yes (Life-Threatening, Hospitalization)
  Sender: FDA-Public Use
  Company Number: CLOF-1000347

PATIENT
  Age: 55 Year
  Sex: Male
  Weight: 85 kg

DRUGS (6)
  1. EVOLTRA (CLOFARABINE) SOLUTION FOR INFUSION [Suspect]
     Indication: ACUTE MYELOID LEUKAEMIA
     Dosage: 30 MG/M2, QD, INTRAVENOUS
     Route: 042
     Dates: start: 20080919, end: 20080923
  2. LINEZOLID [Concomitant]
  3. CANCIDAS [Concomitant]
  4. OMEPRAZOLE [Concomitant]
  5. DILTIAZEM [Concomitant]
  6. RAMIPRIL [Concomitant]

REACTIONS (6)
  - APLASIA [None]
  - COMA [None]
  - CONFUSIONAL STATE [None]
  - ENCEPHALITIS VIRAL [None]
  - HALLUCINATION [None]
  - HERPES ZOSTER [None]
